FAERS Safety Report 13368284 (Version 1)
Quarter: 2017Q1

REPORT INFORMATION
  Report Type: Report from Study
  Country: SG (occurrence: SG)
  Receive Date: 20170324
  Receipt Date: 20170324
  Transmission Date: 20170429
  Serious: Yes (Hospitalization)
  Sender: FDA-Public Use
  Company Number: PHHO2014SG012894

PATIENT
  Age: 58 Year
  Sex: Female
  Weight: 43.5 kg

DRUGS (7)
  1. METOCLOPRAMIDE. [Concomitant]
     Active Substance: METOCLOPRAMIDE
     Indication: VOMITING
     Dosage: 10 MG, PRN
     Route: 048
     Dates: start: 20140619, end: 20140619
  2. FULVESTRANT [Suspect]
     Active Substance: FULVESTRANT
     Indication: BREAST CANCER METASTATIC
     Dosage: 500 MG, Q4W
     Route: 030
     Dates: start: 20140612, end: 20140807
  3. ENOXAPARIN SODIUM. [Concomitant]
     Active Substance: ENOXAPARIN SODIUM
     Dosage: 60 MG, QD
     Route: 058
     Dates: start: 20140807
  4. LYNAE CO Q10 [Concomitant]
     Indication: SUPPLEMENTATION THERAPY
     Dosage: 25 UG, QD
     Route: 048
     Dates: start: 20140807
  5. ENOXAPARIN SODIUM. [Concomitant]
     Active Substance: ENOXAPARIN SODIUM
     Indication: DEEP VEIN THROMBOSIS
     Dosage: 40 MG, BID
     Route: 058
     Dates: start: 20140612, end: 20140807
  6. MEDIGEL [Concomitant]
     Indication: MOUTH ULCERATION
     Dosage: 15 G, TID
     Route: 061
     Dates: start: 20140710, end: 20140717
  7. LEE011 [Suspect]
     Active Substance: RIBOCICLIB
     Indication: BREAST CANCER METASTATIC
     Dosage: 600 MG, QD
     Route: 048
     Dates: start: 20140612, end: 20140903

REACTIONS (4)
  - Transaminases increased [Recovered/Resolved with Sequelae]
  - Hepatitis B [Recovered/Resolved with Sequelae]
  - Ascites [Recovered/Resolved]
  - Pyrexia [Recovered/Resolved]

NARRATIVE: CASE EVENT DATE: 20140904
